FAERS Safety Report 15587118 (Version 1)
Quarter: 2018Q4

REPORT INFORMATION
  Report Type: Spontaneous
  Country: US (occurrence: US)
  Receive Date: 20181105
  Receipt Date: 20181105
  Transmission Date: 20190205
  Serious: Yes (Disabling)
  Sender: FDA-Public Use
  Company Number: None

PATIENT
  Age: 69 Year
  Sex: Male
  Weight: 77.6 kg

DRUGS (9)
  1. ANDEXANET ALFA [Suspect]
     Active Substance: ANDEXANET ALFA
     Indication: PROCOAGULANT THERAPY
     Dosage: ?          OTHER FREQUENCY:8 MG/MIN;?
     Route: 041
  2. HALOPERIDOL. [Concomitant]
     Active Substance: HALOPERIDOL
  3. LABETALOL [Concomitant]
     Active Substance: LABETALOL\LABETALOL HYDROCHLORIDE
     Dates: start: 20181027
  4. ELIQUIS [Suspect]
     Active Substance: APIXABAN
     Dates: start: 20181027
  5. LEVETIRACETAM. [Concomitant]
     Active Substance: LEVETIRACETAM
     Dates: start: 20181027
  6. LATANOPROST. [Concomitant]
     Active Substance: LATANOPROST
     Dates: start: 20181027
  7. NORMAL SALINE [Concomitant]
     Active Substance: SODIUM CHLORIDE
     Dates: start: 20181027
  8. POTASSIUM CHLORIDE. [Concomitant]
     Active Substance: POTASSIUM CHLORIDE
     Dates: start: 20181027
  9. NICARDIPINE [Concomitant]
     Active Substance: NICARDIPINE
     Dates: start: 20181027

REACTIONS (10)
  - Dysarthria [None]
  - Restlessness [None]
  - Facial paralysis [None]
  - Hemiplegia [None]
  - Lethargy [None]
  - Brain scan abnormal [None]
  - Ventricular tachycardia [None]
  - Cerebral haemorrhage [None]
  - Agitation [None]
  - Condition aggravated [None]

NARRATIVE: CASE EVENT DATE: 20181027
